FAERS Safety Report 5676666-5 (Version None)
Quarter: 2008Q1

REPORT INFORMATION
  Report Type: 
  Country: None (occurrence: None)
  Receive Date: 20080320
  Receipt Date: 20080320
  Transmission Date: 20080703
  Serious: No
  Sender: FDA-Public Use
  Company Number: None

PATIENT
  Age: 43 Year
  Sex: Male
  Weight: 127.0072 kg

DRUGS (1)
  1. ALLOPURINOL [Suspect]
     Indication: GOUT
     Dosage: 1 TABLET DAILY PO
     Route: 048
     Dates: start: 20040101, end: 20080319

REACTIONS (2)
  - CHOKING [None]
  - PHARMACEUTICAL PRODUCT COMPLAINT [None]
